FAERS Safety Report 4408871-X (Version None)
Quarter: 2004Q3

REPORT INFORMATION
  Report Type: 
  Country: None (occurrence: None)
  Receive Date: 20040727
  Receipt Date: 20040617
  Transmission Date: 20050211
  Serious: Yes (Death, Disabling)
  Sender: FDA-Public Use
  Company Number: JP-GLAXOSMITHKLINE-B0336090A

PATIENT
  Age: 87 Year
  Sex: Female

DRUGS (12)
  1. VALTREX [Suspect]
     Indication: HERPES ZOSTER
     Dosage: 1000MG THREE TIMES PER DAY
     Route: 048
     Dates: start: 20040611, end: 20040615
  2. CIBENOL [Concomitant]
     Indication: VENTRICULAR TACHYCARDIA
     Dosage: 3TAB PER DAY
     Route: 048
     Dates: start: 20031201, end: 20040616
  3. VASOLAN (JAPAN) [Concomitant]
     Indication: VENTRICULAR TACHYCARDIA
     Dosage: 3TAB PER DAY
     Route: 048
     Dates: start: 20031201, end: 20040616
  4. GASTER D [Concomitant]
     Indication: PROPHYLAXIS AGAINST GASTROINTESTINAL ULCER
     Dosage: 40MG PER DAY
     Route: 048
     Dates: start: 20031101, end: 20040616
  5. HERBESSER R [Concomitant]
     Indication: HYPERTENSION
     Dosage: 200MG PER DAY
     Route: 048
     Dates: start: 20031201, end: 20040616
  6. ALFA D3 [Concomitant]
     Dosage: .5MCG PER DAY
     Route: 048
     Dates: start: 20031101, end: 20040616
  7. BUP-4 [Concomitant]
     Indication: NEUROGENIC BLADDER
     Dosage: 1TAB PER DAY
     Route: 048
     Dates: start: 20031101, end: 20040616
  8. LENDEM [Concomitant]
     Indication: INSOMNIA
     Dosage: .25MG PER DAY
     Route: 048
     Dates: start: 20031101, end: 20040616
  9. FLOMOX [Concomitant]
     Indication: BRONCHITIS
     Dosage: 300MG PER DAY
     Route: 048
     Dates: start: 20040609, end: 20040614
  10. FRANDOL S [Concomitant]
     Indication: ANGINA PECTORIS
     Dosage: 1UNIT PER DAY
     Route: 062
     Dates: start: 20031101, end: 20040616
  11. HUMULIN R [Concomitant]
     Indication: HYPERGLYCAEMIA
     Route: 058
     Dates: start: 20040429, end: 20040616
  12. PREDNISOLONE [Concomitant]
     Indication: INTERSTITIAL LUNG DISEASE
     Dosage: 30MG PER DAY
     Route: 048
     Dates: start: 20031101, end: 20040616

REACTIONS (12)
  - ARRHYTHMIA [None]
  - BLOOD CREATININE INCREASED [None]
  - BLOOD UREA INCREASED [None]
  - CARDIO-RESPIRATORY ARREST [None]
  - DECREASED ACTIVITY [None]
  - DEHYDRATION [None]
  - EATING DISORDER [None]
  - MENTAL DISORDER [None]
  - OBSTRUCTIVE AIRWAYS DISORDER [None]
  - RENAL FAILURE ACUTE [None]
  - SUDDEN DEATH [None]
  - URINE FLOW DECREASED [None]
